FAERS Safety Report 11458211 (Version 1)
Quarter: 2015Q3

REPORT INFORMATION
  Report Type: Spontaneous
  Country: US (occurrence: US)
  Receive Date: 20150904
  Receipt Date: 20150904
  Transmission Date: 20151125
  Serious: Yes (Death, Hospitalization)
  Sender: FDA-Public Use
  Company Number: US-PFIZER INC-2015294444

PATIENT
  Age: 75 Year
  Sex: Male
  Weight: 79 kg

DRUGS (3)
  1. JANUVIA [Concomitant]
     Active Substance: SITAGLIPTIN PHOSPHATE
     Dosage: UNK
  2. METFORMIN [Concomitant]
     Active Substance: METFORMIN HYDROCHLORIDE
     Indication: DIABETES MELLITUS
     Dosage: UNK
     Dates: start: 2012
  3. LIPITOR [Suspect]
     Active Substance: ATORVASTATIN CALCIUM
     Indication: BLOOD CHOLESTEROL INCREASED
     Dosage: 10 MG, DAILY
     Route: 048

REACTIONS (9)
  - Blood urine present [Unknown]
  - Hip fracture [Not Recovered/Not Resolved]
  - Anaemia [Recovered/Resolved]
  - Weight decreased [Unknown]
  - Ulcer [Unknown]
  - Hypopnoea [Unknown]
  - Pancreatic carcinoma [Fatal]
  - Fall [Unknown]
  - Gastric disorder [Unknown]

NARRATIVE: CASE EVENT DATE: 2015
